FAERS Safety Report 7164933-8 (Version None)
Quarter: 2010Q4

REPORT INFORMATION
  Report Type: 
  Country: None (occurrence: None)
  Receive Date: 20101215
  Receipt Date: 20091214
  Transmission Date: 20110411
  Serious: No
  Sender: FDA-Public Use
  Company Number: US-AMGEN-KDL380390

PATIENT

DRUGS (2)
  1. ENBREL [Suspect]
     Indication: PSORIATIC ARTHROPATHY
     Dosage: 50 MG, QWK
     Route: 058
     Dates: start: 20071215
  2. ENBREL [Suspect]
     Indication: PSORIASIS

REACTIONS (3)
  - EAR INFECTION [None]
  - INJECTION SITE PAIN [None]
  - PSORIASIS [None]
